FAERS Safety Report 21254305 (Version 3)
Quarter: 2022Q4

REPORT INFORMATION
  Report Type: Spontaneous
  Country: US (occurrence: US)
  Receive Date: 20220825
  Receipt Date: 20221101
  Transmission Date: 20230113
  Serious: No
  Sender: FDA-Public Use
  Company Number: US-PFIZER INC-PV202200050214

PATIENT
  Age: 65 Year
  Sex: Female

DRUGS (2)
  1. IBRANCE [Suspect]
     Active Substance: PALBOCICLIB
     Indication: Breast cancer female
     Dosage: 125 MG, CYCLIC (TAKE ONE TABLET ONCE DAILY ON DAYS 1-21 EVERY 28 DAYS (3 WEEKS ON, 1 WEEK OFF)
     Route: 048
     Dates: start: 20220628
  2. IBRANCE [Suspect]
     Active Substance: PALBOCICLIB
     Dosage: 100 MG, CYCLIC (ONCE DAILY ON DAYS 1-21 EVERY 28 DAYS (3 WEEKS ON, 1 WEEK OFF))
     Route: 048
     Dates: start: 20220921

REACTIONS (5)
  - Alopecia [Unknown]
  - Nausea [Unknown]
  - White blood cell count decreased [Unknown]
  - Fatigue [Unknown]
  - Alopecia [Unknown]

NARRATIVE: CASE EVENT DATE: 20220101
